FAERS Safety Report 21133810 (Version 7)
Quarter: 2024Q3

REPORT INFORMATION
  Report Type: Report from Study
  Country: DE (occurrence: DE)
  Receive Date: 20220726
  Receipt Date: 20240828
  Transmission Date: 20241017
  Serious: No
  Sender: ROCHE
  Company Number: DE-ROCHE-2355935

PATIENT
  Age: 30 Year
  Sex: Female

DRUGS (11)
  1. OCREVUS [Suspect]
     Active Substance: OCRELIZUMAB
     Indication: Relapsing-remitting multiple sclerosis
     Dosage: SUBSEQUENT DOSES 600 MG 1 IN 180, 185 DAYS
     Route: 042
     Dates: start: 20181128
  2. OCREVUS [Suspect]
     Active Substance: OCRELIZUMAB
     Route: 042
     Dates: start: 20190529
  3. OCREVUS [Suspect]
     Active Substance: OCRELIZUMAB
     Route: 042
     Dates: start: 20200604
  4. OCREVUS [Suspect]
     Active Substance: OCRELIZUMAB
     Route: 042
     Dates: start: 20201203
  5. OCREVUS [Suspect]
     Active Substance: OCRELIZUMAB
     Route: 042
     Dates: start: 20210701
  6. OCREVUS [Suspect]
     Active Substance: OCRELIZUMAB
     Route: 042
     Dates: start: 20220106
  7. OCREVUS [Suspect]
     Active Substance: OCRELIZUMAB
     Dosage: 7TH MAINTENANCE DOSE
     Route: 042
     Dates: start: 20220726
  8. OCREVUS [Suspect]
     Active Substance: OCRELIZUMAB
     Dosage: 8TH MAINTENANCE DOSE
     Route: 042
     Dates: start: 20230725
  9. EUTHYROX [Concomitant]
     Active Substance: LEVOTHYROXINE SODIUM
  10. CHOLECALCIFEROL [Concomitant]
     Active Substance: CHOLECALCIFEROL
  11. MENAQUINONE 6 [Concomitant]
     Active Substance: MENAQUINONE 6

REACTIONS (9)
  - Paraesthesia [Unknown]
  - Drug ineffective [Unknown]
  - Fatigue [Recovered/Resolved]
  - COVID-19 [Recovered/Resolved]
  - Sensory disturbance [Not Recovered/Not Resolved]
  - Listless [Recovered/Resolved]
  - Maternal exposure before pregnancy [Unknown]
  - Nasopharyngitis [Recovered/Resolved]
  - Gait disturbance [Not Recovered/Not Resolved]

NARRATIVE: CASE EVENT DATE: 20200604
